FAERS Safety Report 9340657 (Version 2)
Quarter: 2013Q3

REPORT INFORMATION
  Report Type: Spontaneous
  Country: CA (occurrence: CA)
  Receive Date: 20130610
  Receipt Date: 20130708
  Transmission Date: 20140515
  Serious: Yes (Other)
  Sender: FDA-Public Use
  Company Number: CA-GLAXOSMITHKLINE-A1025631A

PATIENT
  Sex: Female

DRUGS (1)
  1. ADVAIR [Suspect]
     Indication: ASTHMA
     Dosage: 1PUFF TWICE PER DAY
     Route: 055

REACTIONS (6)
  - Lower respiratory tract infection [Unknown]
  - Drug ineffective [Unknown]
  - Emotional distress [Unknown]
  - Fall [Unknown]
  - Condition aggravated [Unknown]
  - Anxiety [Unknown]
